FAERS Safety Report 8488763-X (Version None)
Quarter: 2012Q3

REPORT INFORMATION
  Report Type: 
  Country: None (occurrence: None)
  Receive Date: 20120705
  Receipt Date: 20120629
  Transmission Date: 20120928
  Serious: Yes (Death)
  Sender: FDA-Public Use
  Company Number: FR-ROCHE-1083339

PATIENT
  Age: 78 Year
  Sex: Male
  Weight: 54 kg

DRUGS (11)
  1. KEPPRA [Concomitant]
     Indication: CONVULSION
     Route: 048
  2. PREDNISOLONE [Concomitant]
     Indication: OEDEMA
     Route: 048
  3. ATORVASTATIN [Concomitant]
  4. TEMOZOLOMIDE [Suspect]
     Indication: BRAIN NEOPLASM MALIGNANT
     Route: 048
     Dates: start: 20110927, end: 20111029
  5. FRAGMIN [Concomitant]
     Indication: PROPHYLAXIS
     Route: 048
  6. ACETAMINOPHEN [Concomitant]
  7. TAMSULOSIN HCL [Concomitant]
  8. RABEPRAZOLE SODIUM [Concomitant]
     Indication: ULCER
     Route: 048
  9. AVASTIN [Suspect]
     Indication: BRAIN NEOPLASM MALIGNANT
     Route: 065
     Dates: start: 20110927, end: 20111025
  10. ZOLPIDEM TARTRATE [Concomitant]
  11. LEVOTHYROXINE SODIUM [Concomitant]

REACTIONS (1)
  - BRAIN NEOPLASM MALIGNANT [None]
